FAERS Safety Report 7537492-5 (Version None)
Quarter: 2011Q2

REPORT INFORMATION
  Report Type: 
  Country: None (occurrence: None)
  Receive Date: 20110603
  Receipt Date: 20110518
  Transmission Date: 20111010
  Serious: Yes (Hospitalization, Other)
  Sender: FDA-Public Use
  Company Number: 2011MA006151

PATIENT
  Age: 42 Year
  Sex: Male

DRUGS (8)
  1. PROPRANOLOL [Concomitant]
  2. ASPIRIN [Concomitant]
  3. CITALOPRAM HYDROBROMIDE [Suspect]
     Indication: DEPRESSION
  4. WARFARIN SODIUM [Concomitant]
  5. FENOFIBRATE [Concomitant]
  6. ATORVASTATIN [Concomitant]
  7. QUETIAPINE [Concomitant]
  8. DICLOFENAC SODIUM [Concomitant]

REACTIONS (14)
  - EXTRADURAL HAEMATOMA [None]
  - OEDEMA PERIPHERAL [None]
  - EXCESSIVE EXERCISE [None]
  - MUSCLE HAEMORRHAGE [None]
  - PURPURA [None]
  - ECCHYMOSIS [None]
  - VESSEL PUNCTURE SITE HAEMORRHAGE [None]
  - SPINAL CORD COMPRESSION [None]
  - HYPOVOLAEMIC SHOCK [None]
  - MELAENA [None]
  - SKIN HAEMORRHAGE [None]
  - MUCOSAL HAEMORRHAGE [None]
  - ARTHRALGIA [None]
  - MYALGIA [None]
